FAERS Safety Report 17159205 (Version 1)
Quarter: 2019Q4

REPORT INFORMATION
  Report Type: Spontaneous
  Country: US (occurrence: US)
  Receive Date: 20191214
  Receipt Date: 20191214
  Transmission Date: 20200122
  Serious: No
  Sender: FDA-Public Use
  Company Number: None

PATIENT
  Age: 39 Year
  Sex: Female
  Weight: 81 kg

DRUGS (4)
  1. IVERMECTIN CREAM 1% [Suspect]
     Active Substance: IVERMECTIN
     Indication: ROSACEA
     Route: 061
     Dates: start: 20191207, end: 20191210
  2. WOMEN^S  DAILY VITAMIN [Concomitant]
  3. LEVOTHYROXINE. [Concomitant]
     Active Substance: LEVOTHYROXINE
  4. JUNEL MG-20MCG [Concomitant]

REACTIONS (5)
  - Application site pain [None]
  - Application site irritation [None]
  - Product quality issue [None]
  - Product substitution issue [None]
  - Application site erythema [None]

NARRATIVE: CASE EVENT DATE: 20191207
